FAERS Safety Report 10248001 (Version 7)
Quarter: 2015Q1

REPORT INFORMATION
  Report Type: Spontaneous
  Country: US (occurrence: US)
  Receive Date: 20140619
  Receipt Date: 20150205
  Transmission Date: 20150720
  Serious: Yes (Hospitalization)
  Sender: FDA-Public Use
  Company Number: US-SANKYOGER-DSU-2014-00354

PATIENT

DRUGS (5)
  1. BENICAR [Suspect]
     Active Substance: OLMESARTAN MEDOXOMIL
     Indication: HYPERTENSION
     Dosage: 20 MG, QD
     Route: 048
     Dates: start: 2012, end: 2012
  2. BENICAR HCT [Suspect]
     Active Substance: HYDROCHLOROTHIAZIDE\OLMESARTAN MEDOXOMIL
     Indication: HYPERTENSION
     Dosage: 40/12.5 MG
     Route: 048
     Dates: start: 201102, end: 201212
  3. BENICAR HCT [Suspect]
     Active Substance: HYDROCHLOROTHIAZIDE\OLMESARTAN MEDOXOMIL
     Dosage: 40/25 MG
     Route: 048
     Dates: end: 2012
  4. NORVASC [Concomitant]
     Active Substance: AMLODIPINE BESYLATE
     Indication: HYPERTENSION
     Dosage: 10 MG, QD
     Route: 048
  5. TOPROL XL [Concomitant]
     Active Substance: METOPROLOL SUCCINATE
     Indication: HYPERTENSION
     Dosage: 50 MG, QD
     Route: 048

REACTIONS (15)
  - Renal tubular necrosis [Recovering/Resolving]
  - Oral candidiasis [Unknown]
  - Haematemesis [Unknown]
  - Malabsorption [Recovered/Resolved]
  - Metabolic acidosis [Recovering/Resolving]
  - Leukocytosis [Recovered/Resolved]
  - Hypotension [Unknown]
  - Irritable bowel syndrome [Unknown]
  - Neck pain [Unknown]
  - Haematochezia [Unknown]
  - Hypovolaemic shock [Recovered/Resolved]
  - Haemoconcentration [Recovered/Resolved]
  - Headache [Unknown]
  - Acute kidney injury [Recovering/Resolving]
  - Gout [Recovering/Resolving]

NARRATIVE: CASE EVENT DATE: 2012
